FAERS Safety Report 4546874-5 (Version None)
Quarter: 2005Q1

REPORT INFORMATION
  Report Type: 
  Country: None (occurrence: None)
  Receive Date: 20050106
  Receipt Date: 20041008
  Transmission Date: 20050727
  Serious: Yes (Disabling, Other)
  Sender: FDA-Public Use
  Company Number: US-MERCK-0410USA01506

PATIENT
  Age: 47 Year
  Sex: Female
  Weight: 69 kg

DRUGS (7)
  1. VIOXX [Suspect]
     Indication: ARTHRITIS
     Route: 048
     Dates: start: 20011001, end: 20040930
  2. ULTRAM [Concomitant]
     Indication: PAIN
     Route: 065
  3. TARKA [Concomitant]
     Indication: HYPERTENSION
     Route: 065
  4. XANAX [Concomitant]
     Indication: ANXIETY
     Route: 065
  5. TRAZODONE HYDROCHLORIDE [Concomitant]
     Indication: DEPRESSION
     Route: 065
  6. EVISTA [Concomitant]
     Route: 065
  7. OXYTROL [Concomitant]
     Indication: INCONTINENCE
     Route: 065

REACTIONS (7)
  - DIARRHOEA [None]
  - HAEMORRHAGE [None]
  - HYPERTENSION [None]
  - HYPOAESTHESIA [None]
  - INCONTINENCE [None]
  - NERVE COMPRESSION [None]
  - PARAESTHESIA [None]
